FAERS Safety Report 5029007-0 (Version None)
Quarter: 2006Q2

REPORT INFORMATION
  Report Type: 
  Country: None (occurrence: None)
  Receive Date: 20060613
  Receipt Date: 20060605
  Transmission Date: 20061013
  Serious: Yes (Hospitalization)
  Sender: FDA-Public Use
  Company Number: UA-2006-014311

PATIENT
  Sex: Female

DRUGS (1)
  1. MIRENA [Suspect]
     Indication: CONTRACEPTION
     Dosage: 20 UG/DAY, CONT, INTRA-UTERINE
     Route: 015
     Dates: start: 20041201

REACTIONS (8)
  - ACUTE ABDOMEN [None]
  - AFFECT LABILITY [None]
  - AMENORRHOEA [None]
  - APPENDICITIS [None]
  - HOT FLUSH [None]
  - INTRA-ABDOMINAL HAEMORRHAGE [None]
  - OVARIAN CYST [None]
  - OVARIAN NECROSIS [None]
